FAERS Safety Report 11908570 (Version 1)
Quarter: 2016Q1

REPORT INFORMATION
  Report Type: Spontaneous
  Country: JP (occurrence: JP)
  Receive Date: 20160111
  Receipt Date: 20160111
  Transmission Date: 20160526
  Serious: Yes (Life-Threatening, Hospitalization)
  Sender: FDA-Public Use
  Company Number: JP-MYLANLABS-2016M1000702

PATIENT

DRUGS (4)
  1. SUNITINIB [Suspect]
     Active Substance: SUNITINIB
     Indication: METASTASES TO LIVER
     Dosage: 37.5MG/DAY
     Route: 065
  2. AXITINIB [Suspect]
     Active Substance: AXITINIB
     Indication: METASTASES TO LIVER
     Dosage: 10MG/DAY
     Route: 065
  3. SORAFENIB [Suspect]
     Active Substance: SORAFENIB
     Dosage: 200MG/DAY
     Route: 065
  4. SORAFENIB [Suspect]
     Active Substance: SORAFENIB
     Indication: METASTASES TO LIVER
     Dosage: INITIALLY 800MG/DAY, LATER DOSE REDUCED TO 200MG/DAY
     Route: 065

REACTIONS (5)
  - Gastrointestinal haemorrhage [Recovered/Resolved]
  - Anaemia [Recovering/Resolving]
  - Fatigue [Unknown]
  - Interstitial lung disease [Unknown]
  - Loss of consciousness [Unknown]
